FAERS Safety Report 4275948-1 (Version None)
Quarter: 2004Q1

REPORT INFORMATION
  Report Type: 
  Country: None (occurrence: None)
  Receive Date: 20040121
  Receipt Date: 20030404
  Transmission Date: 20041129
  Serious: No
  Sender: FDA-Public Use
  Company Number: US-GLAXOSMITHKLINE-A0403673A

PATIENT

DRUGS (2)
  1. VALTREX [Suspect]
     Indication: HERPES ZOSTER
     Dosage: 1G SINGLE DOSE
     Route: 048
     Dates: start: 20030401, end: 20030401
  2. NO CONCURRENT MEDICATIONS [Concomitant]

REACTIONS (2)
  - ARTHRALGIA [None]
  - INFLAMMATION LOCALISED [None]
